FAERS Safety Report 5176162-8 (Version None)
Quarter: 2006Q4

REPORT INFORMATION
  Report Type: 
  Country: None (occurrence: None)
  Receive Date: 20061215
  Receipt Date: 20060627
  Transmission Date: 20070319
  Serious: No
  Sender: FDA-Public Use
  Company Number: US-AMGEN-KDL184493

PATIENT
  Sex: Male

DRUGS (2)
  1. ENBREL [Suspect]
     Indication: PSORIASIS
     Route: 058
     Dates: start: 20060614, end: 20060621
  2. METHOTREXATE [Concomitant]

REACTIONS (6)
  - BLOOD GLUCOSE INCREASED [None]
  - CHEST PAIN [None]
  - HYPERHIDROSIS [None]
  - INJECTION SITE PAIN [None]
  - INJECTION SITE REACTION [None]
  - PYREXIA [None]
